FAERS Safety Report 5566526-2 (Version None)
Quarter: 2007Q4

REPORT INFORMATION
  Report Type: 
  Country: None (occurrence: None)
  Receive Date: 20071219
  Receipt Date: 20071218
  Transmission Date: 20080405
  Serious: Yes (Hospitalization)
  Sender: FDA-Public Use
  Company Number: US-BRISTOL-MYERS SQUIBB COMPANY-14018758

PATIENT
  Age: 54 Year
  Sex: Male

DRUGS (3)
  1. PACLITAXEL [Suspect]
     Indication: NON-SMALL CELL LUNG CANCER
     Dosage: TOTAL DOSE 456 MG.
     Route: 042
     Dates: start: 20061128
  2. CARBOPLATIN [Suspect]
     Indication: NON-SMALL CELL LUNG CANCER
     Dosage: 1 DOSAGE FORM=6AUC(TOTAL DAILY DOSE OF1100.4MG)
     Route: 042
     Dates: start: 20061129
  3. CP-751,871 [Suspect]
     Indication: NON-SMALL CELL LUNG CANCER
     Dosage: TOTAL DOSE 1061MG.
     Route: 042
     Dates: start: 20061129

REACTIONS (2)
  - DEHYDRATION [None]
  - FAILURE TO THRIVE [None]
